FAERS Safety Report 6001210-2 (Version None)
Quarter: 2008Q4

REPORT INFORMATION
  Report Type: 
  Country: None (occurrence: None)
  Receive Date: 20081215
  Receipt Date: 20071120
  Transmission Date: 20090506
  Serious: No
  Sender: FDA-Public Use
  Company Number: US-AMGEN-KDL250947

PATIENT
  Sex: Female

DRUGS (2)
  1. ENBREL [Suspect]
     Indication: PSORIASIS
     Route: 058
     Dates: start: 20051129
  2. CYCLOSPORINE [Concomitant]
     Dates: start: 20051108

REACTIONS (2)
  - GENITAL HAEMORRHAGE [None]
  - INFLUENZA [None]
